FAERS Safety Report 6170439-5 (Version None)
Quarter: 2009Q2

REPORT INFORMATION
  Report Type: 
  Country: None (occurrence: None)
  Receive Date: 20090428
  Receipt Date: 20090414
  Transmission Date: 20091009
  Serious: Yes (Other)
  Sender: FDA-Public Use
  Company Number: US-GENENTECH-281746

PATIENT

DRUGS (8)
  1. ACTIVASE [Suspect]
     Indication: PERIPHERAL ISCHAEMIA
     Dosage: UNK , UNK
     Route: 013
  2. CLOPIDOGREL [Suspect]
     Indication: ANTIPLATELET THERAPY
     Dosage: 600 MG, SINGLE
  3. CLOPIDOGREL [Suspect]
     Dosage: 75 MG, QD
     Route: 048
  4. ASPIRIN [Suspect]
     Indication: ANTIPLATELET THERAPY
     Dosage: 325 MG, SINGLE
  5. ASPIRIN [Suspect]
     Dosage: 81 MG, QD
     Route: 048
  6. BIVALIRUDIN [Suspect]
     Indication: ANTICOAGULANT THERAPY
     Dosage: 0.75 MG/KG, SINGLE
  7. BIVALIRUDIN [Suspect]
     Dosage: 1.75 MG/K/H, CONTINUOUS
  8. BIVALIRUDIN [Suspect]
     Dosage: 81 MG, UNK
     Route: 048

REACTIONS (3)
  - DRUG EFFECT DECREASED [None]
  - DRUG INEFFECTIVE [None]
  - PERIPHERAL EMBOLISM [None]
